FAERS Safety Report 23044192 (Version 3)
Quarter: 2023Q4

REPORT INFORMATION
  Report Type: Spontaneous
  Country: CA (occurrence: None)
  Receive Date: 20231009
  Receipt Date: 20231026
  Transmission Date: 20240110
  Serious: Yes (Other)
  Sender: FDA-Public Use
  Company Number: CA-PFIZER INC-202300318434

PATIENT
  Age: 73 Year
  Sex: Female

DRUGS (4)
  1. METHOTREXATE [Suspect]
     Active Substance: METHOTREXATE
     Indication: Rheumatoid arthritis
     Dates: start: 202203
  2. FOLIC ACID [Concomitant]
     Active Substance: FOLIC ACID
     Dosage: ONGOING
  3. PERINDOPRIL [Concomitant]
     Active Substance: PERINDOPRIL
     Dosage: ONGOING
  4. XELJANZ XR [Concomitant]
     Active Substance: TOFACITINIB CITRATE
     Indication: Rheumatoid arthritis
     Dates: start: 20220310, end: 2023

REACTIONS (2)
  - Cataract [Not Recovered/Not Resolved]
  - Schizophrenia [Not Recovered/Not Resolved]
